FAERS Safety Report 23234879 (Version 2)
Quarter: 2023Q4

REPORT INFORMATION
  Report Type: Spontaneous
  Country: JP (occurrence: JP)
  Receive Date: 20231128
  Receipt Date: 20231206
  Transmission Date: 20240110
  Serious: Yes (Death)
  Sender: FDA-Public Use
  Company Number: JP-BRISTOL-MYERS SQUIBB COMPANY-2023-170435

PATIENT
  Age: 46 Year
  Sex: Male
  Weight: 57 kg

DRUGS (5)
  1. ABRAXANE [Suspect]
     Active Substance: PACLITAXEL
     Indication: Non-small cell lung cancer
     Dates: start: 20230424, end: 20230612
  2. ABRAXANE [Suspect]
     Active Substance: PACLITAXEL
     Indication: Non-small cell lung cancer stage IV
  3. CARBOPLATIN [Suspect]
     Active Substance: CARBOPLATIN
     Indication: Non-small cell lung cancer
     Dates: start: 20230424, end: 20230605
  4. IMFINZI [Suspect]
     Active Substance: DURVALUMAB
     Indication: Non-small cell lung cancer stage IV
     Dosage: DURVALUMAB (GENETICAL RECOMBINATION):500MG DURVALUMAB:500.0MG
     Route: 041
     Dates: start: 20230424
  5. IMJUDO [Suspect]
     Active Substance: TREMELIMUMAB\TREMELIMUMAB-ACTL
     Indication: Non-small cell lung cancer stage IV
     Dosage: TREMELIMUMAB (GENETICAL RECOMBINATION):25MG TREMELIMUMABACTL: 25.0MG
     Route: 041
     Dates: start: 20230424, end: 20230823

REACTIONS (1)
  - Death [Fatal]

NARRATIVE: CASE EVENT DATE: 20230928
